FAERS Safety Report 8395412-8 (Version None)
Quarter: 2012Q2

REPORT INFORMATION
  Report Type: 
  Country: None (occurrence: None)
  Receive Date: 20120525
  Receipt Date: 20120525
  Transmission Date: 20120825
  Serious: Yes (Hospitalization)
  Sender: FDA-Public Use
  Company Number: None

PATIENT
  Sex: Female
  Weight: 94.1 kg

DRUGS (3)
  1. CYTOXAN [Concomitant]
  2. DOCETAXEL [Suspect]
     Indication: BREAST CANCER
     Dosage: 150MG EVERY 2WKS IV INFUSION
     Route: 042
     Dates: start: 20120425
  3. DOCETAXEL [Suspect]

REACTIONS (3)
  - OEDEMA PERIPHERAL [None]
  - RASH [None]
  - FEBRILE NEUTROPENIA [None]
